FAERS Safety Report 13598887 (Version 1)
Quarter: 2017Q2

REPORT INFORMATION
  Report Type: Spontaneous
  Country: US (occurrence: US)
  Receive Date: 20170531
  Receipt Date: 20170531
  Transmission Date: 20170830
  Serious: Yes (Death)
  Sender: FDA-Public Use
  Company Number: US-PFIZER INC-2016602606

PATIENT
  Age: 67 Year
  Sex: Female

DRUGS (3)
  1. XALKORI [Suspect]
     Active Substance: CRIZOTINIB
     Dosage: 250 MG, 2X/DAY (WITH OR WITHOUT FOOD)
     Route: 048
     Dates: start: 20170126
  2. XALKORI [Suspect]
     Active Substance: CRIZOTINIB
     Dosage: 200 MG, 2X/DAY (WITH OR WITHOUT FOOD)
     Route: 048
     Dates: start: 20170302
  3. XALKORI [Suspect]
     Active Substance: CRIZOTINIB
     Indication: LUNG ADENOCARCINOMA STAGE IV
     Dosage: 250 MG, 2X/DAY (WITH OR WITHOUT FOOD)
     Route: 048
     Dates: start: 20161227

REACTIONS (1)
  - Death [Fatal]

NARRATIVE: CASE EVENT DATE: 20170516
